FAERS Safety Report 13257915 (Version 1)
Quarter: 2017Q1

REPORT INFORMATION
  Report Type: Spontaneous
  Country: ES (occurrence: ES)
  Receive Date: 20170221
  Receipt Date: 20170221
  Transmission Date: 20170428
  Serious: Yes (Hospitalization)
  Sender: FDA-Public Use
  Company Number: ES-SA-2017SA028091

PATIENT
  Age: 83 Year
  Sex: Male
  Weight: 78 kg

DRUGS (11)
  1. ATACAND PLUS [Concomitant]
     Active Substance: CANDESARTAN CILEXETIL\HYDROCHLOROTHIAZIDE
     Dosage: STRENGTJ: 32MG/25 MG
  2. AMLODIPINE [Concomitant]
     Active Substance: AMLODIPINE BESYLATE
     Dosage: STRENGTH: 10 MG
  3. LANTUS SOLOSTAR [Suspect]
     Active Substance: INSULIN GLARGINE
     Dosage: BEFORE BREAKFAST
     Route: 065
  4. SINTROM [Concomitant]
     Active Substance: ACENOCOUMAROL
  5. ACFOL [Concomitant]
     Active Substance: FOLIC ACID
     Dosage: STRENGTH: 5 MG
  6. METFORMIN [Concomitant]
     Active Substance: METFORMIN HYDROCHLORIDE
     Dosage: 850 MG
  7. ATORVASTATIN [Concomitant]
     Active Substance: ATORVASTATIN
     Dosage: STRENGTH: 40 MG
  8. SOLOSTAR [Concomitant]
     Active Substance: DEVICE
  9. OPTOVITE B12 [Concomitant]
     Active Substance: CYANOCOBALAMIN
     Dosage: 1 AMPOULE PER WEEK
  10. FUROSEMIDE. [Concomitant]
     Active Substance: FUROSEMIDE
     Dosage: STRENGTH: 40 MG
  11. DUODART [Concomitant]
     Active Substance: DUTASTERIDE\TAMSULOSIN
     Dosage: 0.5 MG/0.4 MG

REACTIONS (1)
  - Pneumonia [Recovered/Resolved]

NARRATIVE: CASE EVENT DATE: 20170107
